FAERS Safety Report 22598282 (Version 1)
Quarter: 2023Q2

REPORT INFORMATION
  Report Type: Spontaneous
  Country: US (occurrence: US)
  Receive Date: 20230614
  Receipt Date: 20230614
  Transmission Date: 20230721
  Serious: No
  Sender: FDA-Public Use
  Company Number: US-ARDELYX-2023ARDX000244

PATIENT

DRUGS (2)
  1. IBSRELA [Suspect]
     Active Substance: TENAPANOR HYDROCHLORIDE
     Indication: Irritable bowel syndrome
     Dosage: 50 MILLIGRAM, ONCE DAILY FOR ABOUT A WEEK
     Route: 048
     Dates: start: 202304
  2. IBSRELA [Suspect]
     Active Substance: TENAPANOR HYDROCHLORIDE
     Dosage: 50 MILLIGRAM, BID
     Route: 048

REACTIONS (2)
  - Adverse drug reaction [Unknown]
  - Underdose [Unknown]
